FAERS Safety Report 17721044 (Version 2)
Quarter: 2020Q3

REPORT INFORMATION
  Report Type: Report from Study
  Country: None (occurrence: US)
  Receive Date: 20200428
  Receipt Date: 20200723
  Transmission Date: 20201102
  Serious: Yes (Hospitalization)
  Sender: FDA-Public Use
  Company Number: US-ABBVIE-20K-163-3382168-00

PATIENT
  Sex: Female
  Weight: 69.46 kg

DRUGS (2)
  1. HUMIRA [Suspect]
     Active Substance: ADALIMUMAB
     Indication: CROHN^S DISEASE
     Route: 058
     Dates: start: 202003
  2. IMURAN [Concomitant]
     Active Substance: AZATHIOPRINE
     Indication: CROHN^S DISEASE

REACTIONS (3)
  - Small intestinal obstruction [Recovering/Resolving]
  - Weight decreased [Not Recovered/Not Resolved]
  - Feeding disorder [Recovering/Resolving]

NARRATIVE: CASE EVENT DATE: 2020
